FAERS Safety Report 7537909-6 (Version None)
Quarter: 2011Q2

REPORT INFORMATION
  Report Type: 
  Country: None (occurrence: None)
  Receive Date: 20110609
  Receipt Date: 20110609
  Transmission Date: 20111010
  Serious: Yes (Hospitalization, Other)
  Sender: FDA-Public Use
  Company Number: US-BAYER-200943337NA

PATIENT
  Age: 31 Year
  Sex: Female
  Weight: 60.771 kg

DRUGS (9)
  1. ZYRTEC [Concomitant]
  2. HYDROCODONE BITARTRATE [Concomitant]
     Dosage: UNK
     Dates: start: 20090317
  3. PERCOCET [Concomitant]
  4. XANAX [Concomitant]
  5. YAZ [Suspect]
     Indication: ORAL CONTRACEPTION
     Dosage: UNK UNK, QD
     Route: 048
     Dates: start: 20070601, end: 20090915
  6. YAZ [Suspect]
     Indication: ACNE
  7. MOTRIN [Concomitant]
     Indication: BACK PAIN
     Dosage: UNK
     Dates: start: 20070101
  8. PAXIL [Concomitant]
  9. PRILOSEC [Concomitant]

REACTIONS (12)
  - DIARRHOEA [None]
  - GALLBLADDER DISORDER [None]
  - CHOLECYSTITIS CHRONIC [None]
  - PAIN [None]
  - DEPRESSION [None]
  - BACK PAIN [None]
  - ANXIETY [None]
  - ABDOMINAL DISCOMFORT [None]
  - ABDOMINAL PAIN UPPER [None]
  - VOMITING [None]
  - CHOLELITHIASIS [None]
  - NAUSEA [None]
